FAERS Safety Report 22355835 (Version 1)
Quarter: 2023Q2

REPORT INFORMATION
  Report Type: Spontaneous
  Country: HR (occurrence: HR)
  Receive Date: 20230523
  Receipt Date: 20230523
  Transmission Date: 20230722
  Serious: Yes (Other)
  Sender: FDA-Public Use
  Company Number: None

PATIENT
  Sex: Male

DRUGS (5)
  1. CLOZAPINE [Suspect]
     Active Substance: CLOZAPINE
     Indication: Product used for unknown indication
     Dosage: 650 MILLIGRAM, QD
     Route: 048
     Dates: start: 20230322, end: 20230322
  2. NITRAZEPAM [Suspect]
     Active Substance: NITRAZEPAM
     Indication: Product used for unknown indication
     Dosage: 55 MILLIGRAM, QD
     Route: 048
     Dates: start: 20230322, end: 20230322
  3. ACETAMINOPHEN\CAFFEINE\CODEINE\PROPYPHENAZONE [Suspect]
     Active Substance: ACETAMINOPHEN\CAFFEINE\CODEINE\PROPYPHENAZONE
     Indication: Product used for unknown indication
     Dosage: 12 DF, QD = PARACETAMOL 3G, PROPIFENAZON 2,5G
     Route: 048
     Dates: start: 20230322, end: 20230322
  4. NORMABEL [Suspect]
     Active Substance: DIAZEPAM
     Indication: Product used for unknown indication
     Dosage: 150 MILLIGRAM, QD
     Route: 048
     Dates: start: 20230322, end: 20230322
  5. ARIPIPRAZOLE [Suspect]
     Active Substance: ARIPIPRAZOLE
     Indication: Product used for unknown indication
     Dosage: 120 MILLIGRAM, QD
     Route: 048
     Dates: start: 20230322, end: 20230322

REACTIONS (4)
  - Suicide attempt [Unknown]
  - Mydriasis [Unknown]
  - Somnolence [Unknown]
  - Intentional overdose [Unknown]

NARRATIVE: CASE EVENT DATE: 20230322
